FAERS Safety Report 22651662 (Version 1)
Quarter: 2023Q2

REPORT INFORMATION
  Report Type: Spontaneous
  Country: US (occurrence: US)
  Receive Date: 20230628
  Receipt Date: 20230628
  Transmission Date: 20230722
  Serious: No
  Sender: FDA-Public Use
  Company Number: US-CTI BIOPHARMA-2023US03503

PATIENT

DRUGS (7)
  1. VONJO [Suspect]
     Active Substance: PACRITINIB
     Indication: Myelofibrosis
     Dosage: 200 MG, BID
     Route: 048
  2. PROMACTA [Concomitant]
     Active Substance: ELTROMBOPAG OLAMINE
  3. LORAZEPAM [Concomitant]
     Active Substance: LORAZEPAM
  4. DOPTELET [Concomitant]
     Active Substance: AVATROMBOPAG MALEATE
  5. TAMSULOSIN [Concomitant]
     Active Substance: TAMSULOSIN
  6. PREDNISONE [Concomitant]
     Active Substance: PREDNISONE
  7. IMODIUM AD [Concomitant]
     Active Substance: LOPERAMIDE HYDROCHLORIDE

REACTIONS (1)
  - Diarrhoea [Not Recovered/Not Resolved]
